FAERS Safety Report 6294067-6 (Version None)
Quarter: 2009Q3

REPORT INFORMATION
  Report Type: 
  Country: None (occurrence: None)
  Receive Date: 20090803
  Receipt Date: 20080915
  Transmission Date: 20100115
  Serious: No
  Sender: FDA-Public Use
  Company Number: A0747722A

PATIENT
  Age: 19 Year
  Sex: Male

DRUGS (1)
  1. NICORETTE [Suspect]
     Dates: start: 20080915, end: 20080915

REACTIONS (2)
  - DIZZINESS [None]
  - INTENTIONAL DRUG MISUSE [None]
